FAERS Safety Report 8151381-7 (Version None)
Quarter: 2012Q1

REPORT INFORMATION
  Report Type: 
  Country: None (occurrence: None)
  Receive Date: 20120220
  Receipt Date: 20120210
  Transmission Date: 20120608
  Serious: Yes (Other)
  Sender: FDA-Public Use
  Company Number: US-ASTRAZENECA-2012SE09573

PATIENT
  Age: 63 Year
  Sex: Female
  Weight: 98.1 kg

DRUGS (21)
  1. SEROQUEL [Suspect]
     Route: 048
  2. MELOXICAM [Concomitant]
     Route: 048
  3. FENTANYL [Concomitant]
     Dosage: 75 MCG/HR EVERY 8 HOURS
     Route: 062
  4. LIDOCAINE [Concomitant]
     Route: 054
  5. ZESTRIL [Suspect]
     Route: 048
  6. DICYCLOMINE [Concomitant]
     Route: 048
  7. PROMETHAZINE [Concomitant]
     Indication: NAUSEA
     Route: 048
  8. NYSTATIN [Concomitant]
     Dosage: 100000 UNIT/G BID
     Route: 061
  9. LASIX [Concomitant]
     Route: 048
  10. OXYCODONE HCL AND ACETAMINOPHEN [Concomitant]
     Indication: PAIN
     Dosage: 10-325 MG Q 6 HOURS PRN
     Route: 048
  11. CLORAZEPATE DIPOTASSIUM [Concomitant]
     Route: 048
  12. LEVOTHROID [Concomitant]
     Route: 048
  13. VOLTAREN [Concomitant]
     Route: 061
  14. CARVEDILOL [Concomitant]
     Route: 048
  15. CYMBALTA [Concomitant]
     Route: 048
  16. LUNESTA [Concomitant]
     Indication: SLEEP DISORDER
     Route: 048
  17. LOVASTATIN [Concomitant]
     Route: 048
  18. PRILOSEC [Suspect]
     Route: 048
  19. BETAMETHASONE DIPROPIONATE [Concomitant]
     Route: 061
  20. WARFARIN SODIUM [Concomitant]
     Route: 048
  21. OXYCODONE/ACETAMINOPHEN [Concomitant]
     Indication: PAIN
     Dosage: 10-325 MG Q 6 HOURS PRN
     Route: 048

REACTIONS (15)
  - EMBOLISM [None]
  - WEIGHT DECREASED [None]
  - DEPRESSION [None]
  - INCREASED APPETITE [None]
  - DECREASED APPETITE [None]
  - ASTHENIA [None]
  - WEIGHT ABNORMAL [None]
  - HYPERTENSION [None]
  - MEMORY IMPAIRMENT [None]
  - PAIN [None]
  - MYALGIA [None]
  - CARDIAC FAILURE CONGESTIVE [None]
  - VENOUS THROMBOSIS [None]
  - MYOSITIS [None]
  - INTERVERTEBRAL DISC DEGENERATION [None]
